FAERS Safety Report 5009960-1 (Version None)
Quarter: 2006Q2

REPORT INFORMATION
  Report Type: 
  Country: None (occurrence: None)
  Receive Date: 20060524
  Receipt Date: 20060512
  Transmission Date: 20061013
  Serious: Yes (Hospitalization, Other)
  Sender: FDA-Public Use
  Company Number: JP-BRISTOL-MYERS SQUIBB COMPANY-13388780

PATIENT
  Age: 37 Year
  Sex: Male

DRUGS (4)
  1. TRAZODONE HCL [Suspect]
     Dosage: 25 MG X 14 TABLETS
     Route: 048
     Dates: start: 20050827
  2. ROHYPNOL [Suspect]
     Dosage: 1 MG X 60 TABLETS
     Route: 048
     Dates: start: 20050827
  3. LENDORMIN [Suspect]
     Dosage: 0.25 MG X 30 TABLETS
     Route: 048
     Dates: start: 20050827
  4. DEPAS [Suspect]
     Dosage: 0.5 MG X 14 TABLETS
     Route: 048

REACTIONS (4)
  - DEPRESSED LEVEL OF CONSCIOUSNESS [None]
  - DRUG TOXICITY [None]
  - MULTIPLE DRUG OVERDOSE [None]
  - RESPIRATORY DEPRESSION [None]
